FAERS Safety Report 10447279 (Version 1)
Quarter: 2014Q3

REPORT INFORMATION
  Report Type: Spontaneous
  Country: US (occurrence: None)
  Receive Date: 20140910
  Receipt Date: 20140910
  Transmission Date: 20150326
  Serious: No
  Sender: FDA-Public Use
  Company Number: None

PATIENT

DRUGS (2)
  1. ATIVAN [Suspect]
     Active Substance: LORAZEPAM
  2. RANEXA [Suspect]
     Active Substance: RANOLAZINE

REACTIONS (3)
  - Hypotension [None]
  - Wrong patient received medication [None]
  - Drug monitoring procedure not performed [None]
